FAERS Safety Report 24249300 (Version 1)
Quarter: 2024Q3

REPORT INFORMATION
  Report Type: Spontaneous
  Country: US (occurrence: None)
  Receive Date: 20240823
  Receipt Date: 20240823
  Transmission Date: 20241016
  Serious: Yes (Other)
  Sender: Public
  Company Number: None

PATIENT
  Age: 67 Year
  Sex: Female

DRUGS (1)
  1. CLOBETASOL PROPIONATE [Suspect]
     Active Substance: CLOBETASOL PROPIONATE
     Dosage: FREQUENCY : TWICE A DAY;?
     Route: 061

REACTIONS (3)
  - Rash [None]
  - Nausea [None]
  - Lethargy [None]

NARRATIVE: CASE EVENT DATE: 20240717
